FAERS Safety Report 11287380 (Version 2)
Quarter: 2015Q3

REPORT INFORMATION
  Report Type: Spontaneous
  Country: US (occurrence: US)
  Receive Date: 20150721
  Receipt Date: 20150910
  Transmission Date: 20151125
  Serious: No
  Sender: FDA-Public Use
  Company Number: US-JNJFOC-20150706465

PATIENT
  Age: 67 Year
  Sex: Female
  Weight: 53.07 kg

DRUGS (4)
  1. SIMPONI [Suspect]
     Active Substance: GOLIMUMAB
     Indication: RHEUMATOID ARTHRITIS
     Route: 058
     Dates: start: 200908
  2. PREDNISONE. [Concomitant]
     Active Substance: PREDNISONE
     Indication: RHEUMATOID ARTHRITIS
     Route: 048
  3. METHOTREXATE [Concomitant]
     Active Substance: METHOTREXATE
     Indication: RHEUMATOID ARTHRITIS
     Dosage: DOSE 0.3 CC
     Route: 058
     Dates: start: 200901
  4. PROLIA [Concomitant]
     Active Substance: DENOSUMAB
     Indication: OSTEOPOROSIS
     Route: 058
     Dates: start: 2012

REACTIONS (7)
  - Rash [Not Recovered/Not Resolved]
  - Drug effect decreased [Not Recovered/Not Resolved]
  - Accidental exposure to product [Recovered/Resolved]
  - Visual acuity reduced [Not Recovered/Not Resolved]
  - Osteoporosis [Not Recovered/Not Resolved]
  - Device malfunction [Unknown]
  - Drug dose omission [Unknown]

NARRATIVE: CASE EVENT DATE: 2012
